FAERS Safety Report 8344639-X (Version None)
Quarter: 2012Q2

REPORT INFORMATION
  Report Type: 
  Country: None (occurrence: None)
  Receive Date: 20120508
  Receipt Date: 20120423
  Transmission Date: 20120825
  Serious: Yes (Other)
  Sender: FDA-Public Use
  Company Number: US-ROCHE-801424

PATIENT
  Sex: Female

DRUGS (6)
  1. CYCLOPHOSPHAMIDE AND CYCLOPHOSPHAMIDE [Suspect]
     Indication: BREAST CANCER
     Route: 065
  2. DOCETAXEL [Suspect]
     Indication: BREAST CANCER
     Route: 065
  3. AVASTIN [Suspect]
     Indication: BREAST CANCER
     Route: 042
  4. XELODA [Suspect]
     Indication: BREAST CANCER
     Dosage: DAYS 1 -14
     Route: 065
  5. GEMCITABINE HYDROCHLORIDE [Suspect]
     Indication: BREAST CANCER
     Dosage: DAYS 1 AND 8
     Route: 065
  6. DOXORUBICIN HCL [Suspect]
     Indication: BREAST CANCER
     Route: 065

REACTIONS (18)
  - LEUKOPENIA [None]
  - RASH [None]
  - EMBOLISM [None]
  - FATIGUE [None]
  - HEADACHE [None]
  - HYPERTENSION [None]
  - LEFT VENTRICULAR DYSFUNCTION [None]
  - PALMAR-PLANTAR ERYTHRODYSAESTHESIA SYNDROME [None]
  - MUCOSAL INFLAMMATION [None]
  - PERIPHERAL SENSORY NEUROPATHY [None]
  - NEUTROPENIA [None]
  - DIARRHOEA [None]
  - NAUSEA [None]
  - FEBRILE NEUTROPENIA [None]
  - DYSPNOEA [None]
  - WOUND INFECTION [None]
  - BONE PAIN [None]
  - VOMITING [None]
